FAERS Safety Report 21110696 (Version 1)
Quarter: 2022Q3

REPORT INFORMATION
  Report Type: Spontaneous
  Country: FR (occurrence: FR)
  Receive Date: 20220721
  Receipt Date: 20220721
  Transmission Date: 20221026
  Serious: Yes (Hospitalization, Other)
  Sender: FDA-Public Use
  Company Number: None

PATIENT
  Age: 44 Year
  Sex: Female
  Weight: 85.6 kg

DRUGS (8)
  1. TRANEXAMIC ACID [Suspect]
     Active Substance: TRANEXAMIC ACID
     Indication: Adenomyosis
     Dosage: UNK UNK, PRN
     Route: 048
     Dates: start: 202103, end: 202107
  2. MIRENA [Suspect]
     Active Substance: LEVONORGESTREL
     Indication: Hormonal contraception
     Dosage: 1 DOSAGE FORM, DISPOSABLE INTRAUTERINE, (52 MG (20 MICROGRAMS/24 HOURS) )
     Route: 015
     Dates: start: 202012, end: 202103
  3. COMIRNATY [Suspect]
     Active Substance: TOZINAMERAN
     Indication: COVID-19 immunisation
     Dosage: 1 DOSAGE FORM, D1, DISPERSION INJECTABLE
     Route: 030
     Dates: start: 20211009
  4. COMIRNATY [Suspect]
     Active Substance: TOZINAMERAN
     Dosage: 2 DOSAGE FORM, D2+D3, DISPERSION INJECTABLE
     Route: 030
     Dates: start: 20220115, end: 20220423
  5. COMIRNATY [Suspect]
     Active Substance: TOZINAMERAN
     Dosage: 2 DOSAGE FORM, D2+D3, DISPERSION INJECTABLE
     Route: 030
     Dates: start: 20220115, end: 20220423
  6. PFIZER-BIONTECH COVID-19 VACCINE [Suspect]
     Active Substance: TOZINAMERAN
     Indication: Product used for unknown indication
     Dosage: UNK, (VACCINATION D1 IN MOROCCO)
     Route: 065
     Dates: start: 202107
  7. PFIZER-BIONTECH COVID-19 VACCINE [Suspect]
     Active Substance: TOZINAMERAN
     Dosage: UNK, (VACCINATION D2 IN MOROCCO)
     Route: 065
     Dates: start: 202108
  8. LEVOTHYROXINE SODIUM [Concomitant]
     Active Substance: LEVOTHYROXINE SODIUM
     Indication: Hypothyroidism
     Dosage: 150 MICROGRAM
     Route: 065

REACTIONS (3)
  - Pulmonary embolism [Recovering/Resolving]
  - Dyspnoea [Recovering/Resolving]
  - Ovarian vein thrombosis [Recovering/Resolving]

NARRATIVE: CASE EVENT DATE: 20220203
